FAERS Safety Report 5914099-4 (Version None)
Quarter: 2008Q4

REPORT INFORMATION
  Report Type: 
  Country: None (occurrence: None)
  Receive Date: 20081009
  Receipt Date: 20080930
  Transmission Date: 20090506
  Serious: Yes (Other)
  Sender: FDA-Public Use
  Company Number: FR-SANOFI-SYNTHELABO-A02200802894

PATIENT
  Age: 27 Year
  Sex: Female

DRUGS (1)
  1. PLAQUENIL [Suspect]
     Indication: POLYMORPHIC LIGHT ERUPTION
     Route: 048
     Dates: start: 20080801, end: 20080825

REACTIONS (4)
  - CHEILITIS [None]
  - ECZEMA [None]
  - LIP OEDEMA [None]
  - MOUTH ULCERATION [None]
